FAERS Safety Report 11832477 (Version 3)
Quarter: 2016Q1

REPORT INFORMATION
  Report Type: Spontaneous
  Country: US (occurrence: US)
  Receive Date: 20151214
  Receipt Date: 20160126
  Transmission Date: 20160525
  Serious: No
  Sender: FDA-Public Use
  Company Number: US-PFIZER INC-2015410216

PATIENT
  Age: 82 Year
  Sex: Female
  Weight: 54 kg

DRUGS (2)
  1. TRIFLURIDINE. [Suspect]
     Active Substance: TRIFLURIDINE
     Dosage: UNK
  2. TRIFLURIDINE. [Suspect]
     Active Substance: TRIFLURIDINE
     Indication: HERPES OPHTHALMIC
     Dosage: 1 DF, UNK (1 DROP TO LEFT EYE 9 TIMES A DAY)
     Dates: start: 20151122

REACTIONS (1)
  - Drug ineffective [Not Recovered/Not Resolved]

NARRATIVE: CASE EVENT DATE: 201511
